FAERS Safety Report 8195349-3 (Version None)
Quarter: 2012Q1

REPORT INFORMATION
  Report Type: 
  Country: None (occurrence: None)
  Receive Date: 20120308
  Receipt Date: 20120229
  Transmission Date: 20120608
  Serious: Yes (Other)
  Sender: FDA-Public Use
  Company Number: US-GLAXOSMITHKLINE-A0957538A

PATIENT
  Age: 42 Year
  Sex: Female

DRUGS (15)
  1. ALBUTEROL [Concomitant]
  2. LASIX [Concomitant]
  3. MEDROL [Concomitant]
  4. PROAIR HFA [Concomitant]
  5. LISINOPRIL [Concomitant]
  6. TRIAVIL [Concomitant]
  7. PRILOSEC [Concomitant]
  8. SINGULAIR [Concomitant]
  9. FLOVENT [Suspect]
     Indication: ASTHMA
     Dosage: 2PUFF TWICE PER DAY
     Route: 055
     Dates: start: 20100301
  10. IPRATROPIUM BROMIDE [Concomitant]
  11. PHAZYME [Concomitant]
  12. ZITHROMAX [Concomitant]
  13. IPRATROPIUM SOLUTION [Concomitant]
  14. ZYRTEC [Concomitant]
  15. MUCINEX [Concomitant]

REACTIONS (4)
  - ASTHMA [None]
  - DRUG INEFFECTIVE [None]
  - ORAL CANDIDIASIS [None]
  - PRODUCT QUALITY ISSUE [None]
